FAERS Safety Report 4796227-X (Version None)
Quarter: 2005Q4

REPORT INFORMATION
  Report Type: 
  Country: None (occurrence: None)
  Receive Date: 20051013
  Receipt Date: 20051007
  Transmission Date: 20060501
  Serious: Yes (Hospitalization, Other)
  Sender: FDA-Public Use
  Company Number: JP-BOEHRINGER INGELHEIM PHARMACEUTICALS, INC.-2005-BP-18026NB

PATIENT
  Age: 83 Year
  Sex: Female

DRUGS (4)
  1. BI-SIFROL TABLETS [Suspect]
     Indication: PARKINSON'S DISEASE
     Route: 048
     Dates: start: 20050909
  2. NORVASC [Concomitant]
     Indication: HYPERTENSION
     Route: 048
  3. MICARDIS [Concomitant]
     Indication: HYPERTENSION
     Route: 048
  4. MEDICINALPRODUCT NOT SPECIFIED BY SENDER [Concomitant]
     Indication: PRURITUS
     Route: 048

REACTIONS (2)
  - HYPONATRAEMIA [None]
  - VOMITING [None]
